FAERS Safety Report 9516722 (Version 1)
Quarter: 2013Q3

REPORT INFORMATION
  Report Type: Spontaneous
  Country: US (occurrence: US)
  Receive Date: 20130911
  Receipt Date: 20130911
  Transmission Date: 20140515
  Serious: Yes (Hospitalization)
  Sender: FDA-Public Use
  Company Number: US-ELI_LILLY_AND_COMPANY-US201308010009

PATIENT
  Age: 64 Year
  Sex: Female

DRUGS (15)
  1. HUMALOG LISPRO [Suspect]
     Indication: TYPE 2 DIABETES MELLITUS
     Dosage: 8 U, TID
     Dates: start: 1999
  2. HUMALOG LISPRO [Suspect]
     Dosage: UNK
  3. HUMULIN NPH [Suspect]
     Dosage: UNK
  4. INSULIN HUMAN [Suspect]
     Dosage: UNK
  5. LANTUS [Concomitant]
     Dosage: UNK
  6. NEURONTIN [Concomitant]
     Dosage: UNK
  7. LACTULOSE [Concomitant]
     Dosage: UNK
  8. LISINOPRIL [Concomitant]
     Dosage: UNK
  9. REMERON [Concomitant]
     Dosage: UNK
  10. INDERAL [Concomitant]
     Dosage: UNK
  11. RISPERDAL [Concomitant]
     Dosage: UNK
  12. SPIRONOLACTONE [Concomitant]
     Dosage: UNK
  13. THIAMINE [Concomitant]
     Dosage: UNK
  14. PRILOSEC                           /00661201/ [Concomitant]
     Dosage: UNK
  15. POTASSIUM [Concomitant]
     Dosage: UNK

REACTIONS (5)
  - Oedema peripheral [Unknown]
  - Blood glucose increased [Unknown]
  - Confusional state [Unknown]
  - Blood glucose increased [Unknown]
  - Malaise [Unknown]
